FAERS Safety Report 9813928 (Version 5)
Quarter: 2014Q2

REPORT INFORMATION
  Report Type: Spontaneous
  Country: US (occurrence: US)
  Receive Date: 20140113
  Receipt Date: 20140509
  Transmission Date: 20141212
  Serious: Yes (Death, Hospitalization, Other)
  Sender: FDA-Public Use
  Company Number: US-UCBSA-107738

PATIENT
  Age: 74 Year
  Sex: Male

DRUGS (2)
  1. VIMPAT [Suspect]
     Indication: CONVULSION
     Dosage: 100MG
     Dates: start: 2012, end: 20140204
  2. VIMPAT [Suspect]
     Indication: CONVULSION
     Dosage: 100 MG AM 150 MG PM

REACTIONS (5)
  - General physical health deterioration [Fatal]
  - Atrioventricular block complete [Recovered/Resolved]
  - Cerebral ventricle dilatation [Unknown]
  - Fall [Unknown]
  - Sluggishness [Unknown]
